FAERS Safety Report 7620398-0 (Version None)
Quarter: 2011Q3

REPORT INFORMATION
  Report Type: 
  Country: None (occurrence: None)
  Receive Date: 20110718
  Receipt Date: 20110718
  Transmission Date: 20111222
  Serious: Yes (Hospitalization, Other)
  Sender: FDA-Public Use
  Company Number: None

PATIENT
  Age: 16 Year
  Sex: Female
  Weight: 58.967 kg

DRUGS (1)
  1. PANTOPRAZOLE [Suspect]
     Indication: GASTROOESOPHAGEAL REFLUX DISEASE
     Dosage: 40MG 1/2HR BEFORE DINNER
     Route: 048
     Dates: start: 20110502, end: 20110713

REACTIONS (9)
  - DIZZINESS [None]
  - VISION BLURRED [None]
  - VERTIGO [None]
  - DYSGEUSIA [None]
  - ANXIETY [None]
  - DYSPNOEA [None]
  - RASH [None]
  - DEPRESSION [None]
  - TREMOR [None]
